FAERS Safety Report 4341067-9 (Version None)
Quarter: 2004Q2

REPORT INFORMATION
  Report Type: 
  Country: None (occurrence: None)
  Receive Date: 20040419
  Receipt Date: 20040407
  Transmission Date: 20050107
  Serious: Yes (Hospitalization, Disabling, Other)
  Sender: FDA-Public Use
  Company Number: PL-BRISTOL-MYERS SQUIBB COMPANY-12561635

PATIENT
  Age: 72 Year
  Sex: Male

DRUGS (8)
  1. SINEMET CR [Suspect]
     Indication: PARKINSON'S DISEASE
     Dosage: INTERRUPTED 04-DEC-2003, THEN RESTARTED IN JANUARY 2004 AT A LOWER DOSE
     Route: 048
     Dates: start: 19960101
  2. ACCUPRO [Concomitant]
     Dates: start: 19960101
  3. OMNIC [Concomitant]
     Dates: start: 19960101
  4. PROSCAR [Concomitant]
     Dates: start: 19960101
  5. SINTROM [Concomitant]
  6. AMANTADINE HCL [Concomitant]
  7. CARVEDILOL [Concomitant]
  8. GLICLAZIDE [Concomitant]

REACTIONS (4)
  - DEEP VEIN THROMBOSIS [None]
  - DUODENAL ULCER [None]
  - DYSKINESIA [None]
  - PULMONARY EMBOLISM [None]
